FAERS Safety Report 19362925 (Version 4)
Quarter: 2021Q3

REPORT INFORMATION
  Report Type: Report from Study
  Country: CZ (occurrence: CZ)
  Receive Date: 20210602
  Receipt Date: 20210716
  Transmission Date: 20211014
  Serious: Yes (Hospitalization)
  Sender: FDA-Public Use
  Company Number: CZ-OTSUKA-2021_017678

PATIENT
  Weight: 92 kg

DRUGS (24)
  1. KALIUM CHLORIDUM [Concomitant]
     Indication: PROPHYLAXIS
     Dosage: UNK
     Route: 048
     Dates: start: 20130115, end: 20210510
  2. ALLOPURINOLUM [Concomitant]
     Indication: PROPHYLAXIS
     Dosage: UNK
     Route: 048
     Dates: start: 20210413, end: 20210517
  3. PREGABALINUM [Concomitant]
     Active Substance: PREGABALIN
     Indication: OSTEOARTHRITIS
     Dosage: UNK
     Route: 048
     Dates: start: 20030115, end: 20210525
  4. ASTX727 [Suspect]
     Active Substance: CEDAZURIDINE\DECITABINE
     Indication: ACUTE MYELOID LEUKAEMIA
     Dosage: 100 MG CEDAZURINE AND 35 MG DECITABINE DAY 1?5 IN A 28 DAY CYCLE
     Route: 065
     Dates: start: 20210511
  5. METFORMINI HYDROCHLORIDUM [Concomitant]
     Indication: TYPE 2 DIABETES MELLITUS
     Dosage: UNK
     Route: 048
     Dates: start: 20200115, end: 20210510
  6. COLECALCIFEROLUM [Concomitant]
     Indication: HYPOVITAMINOSIS
     Dosage: UNK
     Route: 048
     Dates: start: 20210511, end: 20210525
  7. BENZYDAMINE HYDROCHLORIDE [Concomitant]
     Active Substance: BENZYDAMINE HYDROCHLORIDE
     Indication: PROPHYLAXIS
     Dosage: UNK
     Route: 048
     Dates: start: 20210515, end: 20210517
  8. MAGNESII SUBCARBONAS LEVIS [Concomitant]
     Indication: PROPHYLAXIS
     Dosage: UNK
     Route: 048
     Dates: start: 20160115, end: 20210510
  9. ENOXAPARINUM NATRICUM [Concomitant]
     Dosage: UNK
     Route: 058
     Dates: start: 20210331, end: 20210525
  10. SODIUM HYALURONATE [Concomitant]
     Active Substance: HYALURONATE SODIUM
     Indication: PROPHYLAXIS
     Dosage: UNK
     Route: 050
     Dates: start: 20210510, end: 20210525
  11. GLYCOSAMINOGLYCAN POLYSULFATE [Concomitant]
     Indication: PROPHYLAXIS
     Dosage: UNK
     Route: 065
  12. AMLODIPINUM [Concomitant]
     Indication: HYPERTENSION
     Dosage: UNK
     Route: 048
     Dates: start: 20130115, end: 20210525
  13. FUROSEMIDUM [FUROSEMIDE] [Concomitant]
     Active Substance: FUROSEMIDE
     Indication: PROPHYLAXIS
     Dosage: UNK
     Route: 048
     Dates: start: 20030115, end: 20210525
  14. ONDASETRON [ONDANSETRON] [Concomitant]
     Active Substance: ONDANSETRON
     Indication: PROPHYLAXIS OF NAUSEA AND VOMITING
     Dosage: UNK
     Route: 048
     Dates: start: 20210511, end: 20210515
  15. SULFAMETHOXAZOLE AND TRIMETHOPRIM [Concomitant]
     Active Substance: SULFAMETHOXAZOLE\TRIMETHOPRIM
     Indication: INFECTION PROPHYLAXIS
     Dosage: UNK
     Route: 048
     Dates: start: 20210401
  16. COLECALCIFEROLUM [Concomitant]
     Indication: PROPHYLAXIS
  17. METAMIZOLUM NATRICUM [Concomitant]
     Indication: C-REACTIVE PROTEIN INCREASED
     Dosage: UNK
     Route: 042
     Dates: start: 20210512, end: 20210512
  18. TRAMADOLI HYDROCHLORIDUM [Concomitant]
     Indication: PAIN PROPHYLAXIS
     Dosage: UNK
     Route: 048
     Dates: start: 20210513, end: 20210513
  19. FLUCONAZOLUM [FLUCONAZOLE] [Concomitant]
     Indication: INFECTION PROPHYLAXIS
     Dosage: UNK
     Route: 048
     Dates: start: 20210412, end: 20210517
  20. ROSUVASTATINUM [Concomitant]
     Active Substance: ROSUVASTATIN
     Indication: HYPERLIPIDAEMIA
     Dosage: UNK
     Route: 048
     Dates: start: 20130115, end: 20210525
  21. LOSARTAN KALIUM AXCOUNT [Concomitant]
     Indication: HYPERTENSION
     Dosage: UNK
     Route: 048
     Dates: start: 20130115, end: 20210525
  22. METOPROLOLI SUCCINAS (2:1) [Concomitant]
     Indication: HYPERTENSION
     Dosage: UNK
     Route: 048
     Dates: start: 20130115, end: 20210525
  23. ENOXAPARINUM NATRICUM [Concomitant]
     Indication: PROPHYLAXIS
     Dosage: UNK
     Route: 058
     Dates: start: 20210503, end: 20210516
  24. CEFEPIMI DIHYDROCHLORIDUM MONOHYDRICUM [Concomitant]
     Active Substance: CEFEPIME HYDROCHLORIDE
     Indication: C-REACTIVE PROTEIN INCREASED
     Dosage: UNK
     Route: 042
     Dates: start: 20210514, end: 20210516

REACTIONS (1)
  - Urinary tract infection [Recovered/Resolved]

NARRATIVE: CASE EVENT DATE: 20210520
